FAERS Safety Report 25282717 (Version 2)
Quarter: 2025Q2

REPORT INFORMATION
  Report Type: Report from Study
  Country: AU (occurrence: AU)
  Receive Date: 20250508
  Receipt Date: 20250515
  Transmission Date: 20250717
  Serious: Yes (Hospitalization, Other)
  Sender: PFIZER
  Company Number: AU-PFIZER INC-PV202500053279

PATIENT

DRUGS (2)
  1. NIRMATRELVIR\RITONAVIR [Interacting]
     Active Substance: NIRMATRELVIR\RITONAVIR
     Indication: COVID-19
  2. TACROLIMUS [Interacting]
     Active Substance: TACROLIMUS
     Indication: COVID-19

REACTIONS (2)
  - Drug interaction [Unknown]
  - Acute kidney injury [Unknown]
